FAERS Safety Report 7607966-7 (Version None)
Quarter: 2011Q3

REPORT INFORMATION
  Report Type: 
  Country: None (occurrence: None)
  Receive Date: 20110714
  Receipt Date: 20110713
  Transmission Date: 20111222
  Serious: No
  Sender: FDA-Public Use
  Company Number: US-PFIZER INC-2011158892

PATIENT
  Sex: Male
  Weight: 73.923 kg

DRUGS (1)
  1. CELEBREX [Suspect]
     Indication: SCIATICA
     Dosage: 200 MG, 2X/DAY
     Route: 048
     Dates: start: 20110531, end: 20110620

REACTIONS (3)
  - MALAISE [None]
  - DRUG INEFFECTIVE [None]
  - NAUSEA [None]
